FAERS Safety Report 18561185 (Version 1)
Quarter: 2020Q4

REPORT INFORMATION
  Report Type: Report from Study
  Country: US (occurrence: US)
  Receive Date: 20201130
  Receipt Date: 20201130
  Transmission Date: 20210114
  Serious: No
  Sender: FDA-Public Use
  Company Number: US-AGIOS-2011US02270

PATIENT

DRUGS (1)
  1. TIBSOVO [Suspect]
     Active Substance: IVOSIDENIB
     Indication: NEOPLASM MALIGNANT
     Dosage: 500 MILLIGRAM, QD
     Route: 048
     Dates: start: 20201030

REACTIONS (4)
  - Off label use [Unknown]
  - Diarrhoea [Unknown]
  - Stress [Unknown]
  - Procedural pain [Unknown]

NARRATIVE: CASE EVENT DATE: 20201030
